FAERS Safety Report 12326234 (Version 1)
Quarter: 2016Q2

REPORT INFORMATION
  Report Type: Spontaneous
  Country: US (occurrence: None)
  Receive Date: 20160502
  Receipt Date: 20160502
  Transmission Date: 20160815
  Serious: No
  Sender: FDA-Public Use
  Company Number: None

PATIENT
  Age: 33 Year
  Sex: Female
  Weight: 81.19 kg

DRUGS (7)
  1. LINZESS [Suspect]
     Active Substance: LINACLOTIDE
     Indication: CONSTIPATION
     Dosage: AT BEDTIME TAKEN BY MOUTH
     Route: 048
     Dates: start: 20160501, end: 20160501
  2. NATURE-THROID [Concomitant]
     Active Substance: THYROID, PORCINE
  3. PROTONIX [Concomitant]
     Active Substance: PANTOPRAZOLE SODIUM
  4. VICTOZA [Concomitant]
     Active Substance: LIRAGLUTIDE
  5. TESTOSTERONE. [Concomitant]
     Active Substance: TESTOSTERONE
  6. PROGESTERONE. [Concomitant]
     Active Substance: PROGESTERONE
  7. SUCRALFATE. [Concomitant]
     Active Substance: SUCRALFATE

REACTIONS (7)
  - Abdominal pain [None]
  - Asthenia [None]
  - Abdominal discomfort [None]
  - Vomiting [None]
  - Syncope [None]
  - Diarrhoea [None]
  - Nausea [None]

NARRATIVE: CASE EVENT DATE: 20160501
